FAERS Safety Report 4731218-6 (Version None)
Quarter: 2005Q3

REPORT INFORMATION
  Report Type: 
  Country: None (occurrence: None)
  Receive Date: 20050802
  Receipt Date: 20050721
  Transmission Date: 20060218
  Serious: Yes (Other)
  Sender: FDA-Public Use
  Company Number: CA-JNJFOC-20050704327

PATIENT
  Sex: Female
  Weight: 78 kg

DRUGS (11)
  1. REMICADE [Suspect]
     Dosage: 13TH DOSE.
     Route: 042
  2. REMICADE [Suspect]
     Dosage: 7TH TREATMENT
     Route: 042
  3. REMICADE [Suspect]
     Indication: RHEUMATOID ARTHRITIS
     Route: 042
  4. METHOTREXATE [Concomitant]
     Indication: ARTHRITIS
  5. PREDNISONE [Concomitant]
     Indication: ARTHRITIS
  6. HYZAAR [Concomitant]
  7. HYZAAR [Concomitant]
     Indication: HYPERTENSION
  8. PROVERA [Concomitant]
     Indication: MENOPAUSE
  9. OTHER MEDS FOR HORMONE/MENOPAUSE [Concomitant]
     Indication: MENOPAUSE
  10. ASCORBIC ACID [Concomitant]
  11. SYNTHROID [Concomitant]
     Indication: HYPERTHYROIDISM

REACTIONS (5)
  - COUGH [None]
  - INFUSION RELATED REACTION [None]
  - LYMPHOMA [None]
  - PRURITUS [None]
  - URTICARIA [None]
